FAERS Safety Report 8779549 (Version 1)
Quarter: 2012Q4

REPORT INFORMATION
  Report Type: 
  Country: BE (occurrence: BE)
  Receive Date: 20120912
  Receipt Date: 20120912
  Transmission Date: 20130627
  Serious: Yes (Other)
  Sender: FDA-Public Use
  Company Number: BE-NOVOPROD-357160

PATIENT
  Age: 58 Year
  Sex: Female
  Weight: 78 kg

DRUGS (7)
  1. VICTOZA [Suspect]
     Indication: DIABETES MELLITUS
     Dosage: 1.2 mg, qd
     Route: 058
     Dates: start: 201201
  2. VICTOZA [Suspect]
     Dosage: 1.2 mg, qd
     Route: 058
     Dates: start: 20120531, end: 20120725
  3. GLUCOPHAGE [Concomitant]
     Dosage: 850
     Route: 048
     Dates: start: 200003
  4. DAONIL [Concomitant]
     Dosage: 1.5 mg, qd
     Route: 048
     Dates: start: 200003
  5. AMLODIPINE [Concomitant]
     Dosage: 1
     Route: 048
     Dates: start: 201201
  6. DIOVANE [Concomitant]
     Dosage: 1
     Route: 048
     Dates: start: 2006
  7. AGGRENOX [Concomitant]
     Dosage: 1
     Route: 048
     Dates: start: 201201

REACTIONS (2)
  - Lipase increased [Not Recovered/Not Resolved]
  - Gastrointestinal disorder [Not Recovered/Not Resolved]
